FAERS Safety Report 23273239 (Version 1)
Quarter: 2023Q4

REPORT INFORMATION
  Report Type: Spontaneous
  Country: US (occurrence: None)
  Receive Date: 20231207
  Receipt Date: 20231207
  Transmission Date: 20240109
  Serious: Yes (Other)
  Sender: FDA-Public Use
  Company Number: None

PATIENT
  Sex: Female

DRUGS (5)
  1. PROLIA [Suspect]
     Active Substance: DENOSUMAB
     Indication: Osteoporosis
     Route: 058
     Dates: start: 20220518
  2. COZAAR [Concomitant]
     Active Substance: LOSARTAN POTASSIUM
  3. ELIQUIS [Concomitant]
  4. FEMARA [Concomitant]
  5. LASIX [Concomitant]

REACTIONS (1)
  - Bone disorder [None]
